FAERS Safety Report 7044390-2 (Version None)
Quarter: 2010Q4

REPORT INFORMATION
  Report Type: 
  Country: None (occurrence: None)
  Receive Date: 20101014
  Receipt Date: 20100325
  Transmission Date: 20110411
  Serious: Yes (Other)
  Sender: FDA-Public Use
  Company Number: US-BAYER-201023107NA

PATIENT
  Age: 19 Year
  Sex: Female
  Weight: 45 kg

DRUGS (18)
  1. YAZ [Suspect]
     Indication: CONTRACEPTION
     Route: 048
     Dates: start: 20070301, end: 20090501
  2. YASMIN [Suspect]
     Indication: CONTRACEPTION
     Dosage: ACCORDING TO PHARMACY RECORDS
     Route: 048
     Dates: start: 20051206, end: 20080425
  3. YASMIN [Suspect]
     Dosage: REPORTED BY THE CONSUMER
     Route: 048
     Dates: start: 20030101, end: 20040101
  4. NSAID [Concomitant]
  5. ANTIBIOTICS [Concomitant]
  6. ST. JOHNS WORT [Concomitant]
  7. UNKNOWN DRUG [Concomitant]
     Indication: MIGRAINE
  8. AZITHROMYCIN [Concomitant]
  9. CEPHALEXIN [Concomitant]
  10. ZOLOFT [Concomitant]
  11. FLUOXETINE HCL [Concomitant]
  12. PARAOXETINE HCL [Concomitant]
  13. BUSPIRONE HCL [Concomitant]
  14. HYOSCYAMINE SULFATE [Concomitant]
  15. PROMETHEGAN [Concomitant]
  16. AMITRIPTYLINE HCL [Concomitant]
  17. SKELAXIN [Concomitant]
  18. CIPROFLOXACIN HCL [Concomitant]

REACTIONS (6)
  - ANXIETY [None]
  - BILIARY COLIC [None]
  - DEPRESSION [None]
  - DIARRHOEA [None]
  - MIGRAINE [None]
  - NAUSEA [None]
